FAERS Safety Report 6083681-9 (Version None)
Quarter: 2009Q1

REPORT INFORMATION
  Report Type: 
  Country: None (occurrence: None)
  Receive Date: 20090219
  Receipt Date: 20090210
  Transmission Date: 20090719
  Serious: Yes (Death)
  Sender: FDA-Public Use
  Company Number: US-AMGEN-US333106

PATIENT
  Sex: Male
  Weight: 148 kg

DRUGS (5)
  1. NPLATE [Suspect]
     Indication: IDIOPATHIC THROMBOCYTOPENIC PURPURA
     Dates: start: 20081218, end: 20090127
  2. WARFARIN SODIUM [Concomitant]
  3. GLUCOTROL [Concomitant]
  4. PREDNISONE [Concomitant]
  5. MULTI-VITAMINS [Concomitant]

REACTIONS (1)
  - CARDIAC FAILURE CONGESTIVE [None]
